FAERS Safety Report 6839328-4 (Version None)
Quarter: 2010Q3

REPORT INFORMATION
  Report Type: 
  Country: None (occurrence: None)
  Receive Date: 20100714
  Receipt Date: 20100701
  Transmission Date: 20110219
  Serious: Yes (Other)
  Sender: FDA-Public Use
  Company Number: PHHY2010US40577

PATIENT

DRUGS (1)
  1. RECLAST [Suspect]
     Dosage: 5 MG/YEAR
     Route: 042

REACTIONS (2)
  - OSTEONECROSIS [None]
  - SURGERY [None]
